FAERS Safety Report 6930979 (Version 5)
Quarter: 2016Q3

REPORT INFORMATION
  Report Type: Spontaneous
  Country: JP (occurrence: JP)
  Receive Date: 20090309
  Receipt Date: 20160923
  Transmission Date: 20161109
  Serious: Yes (Hospitalization)
  Sender: FDA-Public Use
  Company Number: JP-BRISTOL-MYERS SQUIBB COMPANY-14532089

PATIENT
  Age: 53 Year
  Sex: Female
  Weight: 66 kg

DRUGS (10)
  1. RISPERDAL [Concomitant]
     Active Substance: RISPERIDONE
     Indication: RESTLESSNESS
     Dosage: 4 MG, QD
     Route: 048
     Dates: start: 20071025, end: 20071119
  2. RISPERDAL [Concomitant]
     Active Substance: RISPERIDONE
     Dosage: 2 ML, UNK
     Route: 048
     Dates: start: 20071122
  3. ABILIFY [Suspect]
     Active Substance: ARIPIPRAZOLE
     Indication: SCHIZOPHRENIA
     Dosage: REDUCED TO 5MG/D, 4MG/D.
     Route: 048
     Dates: start: 20071025, end: 20071120
  4. RISPERDAL [Concomitant]
     Active Substance: RISPERIDONE
     Dosage: 9 MG, QD
     Route: 048
     Dates: start: 20080214
  5. RISPERDAL [Concomitant]
     Active Substance: RISPERIDONE
     Indication: SCHIZOPHRENIA
     Dosage: 5 MG, QD
     Route: 048
     Dates: start: 20041021, end: 20071024
  6. RISPERDAL [Concomitant]
     Active Substance: RISPERIDONE
     Dosage: 12 MG, QD
     Route: 048
     Dates: start: 20071126, end: 20080420
  7. RISPERDAL [Concomitant]
     Active Substance: RISPERIDONE
     Dosage: 8 MG, QD
     Route: 048
     Dates: start: 20071126, end: 20080213
  8. PYRETHIA                           /00033002/ [Concomitant]
     Indication: PARKINSONISM
     Dosage: 50 MG, BID
     Route: 048
     Dates: start: 20041021
  9. ACTOS [Concomitant]
     Active Substance: PIOGLITAZONE HYDROCHLORIDE
     Indication: DIABETES MELLITUS
     Dosage: 15 MG, QD
     Route: 048
     Dates: start: 20060119
  10. RISPERDAL [Concomitant]
     Active Substance: RISPERIDONE
     Dosage: 6 MG, QD
     Route: 048
     Dates: start: 20071120, end: 20071125

REACTIONS (1)
  - Psychiatric symptom [Recovering/Resolving]

NARRATIVE: CASE EVENT DATE: 200711
